FAERS Safety Report 18156260 (Version 1)
Quarter: 2020Q3

REPORT INFORMATION
  Report Type: Spontaneous
  Country: US (occurrence: US)
  Receive Date: 20200815
  Receipt Date: 20200815
  Transmission Date: 20201103
  Serious: Yes (Life-Threatening, Hospitalization)
  Sender: FDA-Public Use
  Company Number: None

PATIENT
  Age: 47 Year
  Sex: Male
  Weight: 94.5 kg

DRUGS (8)
  1. LEVETIRACETAM. [Concomitant]
     Active Substance: LEVETIRACETAM
  2. TUMS [Concomitant]
     Active Substance: CALCIUM CARBONATE
  3. PANTOPRAZOLE [Concomitant]
     Active Substance: PANTOPRAZOLE
  4. DESMOPRESSIN ACETATE. [Suspect]
     Active Substance: DESMOPRESSIN ACETATE
     Indication: DIABETES INSIPIDUS
     Dosage: ?          OTHER STRENGTH:MCG PER 0.1 ML;QUANTITY:1 SPRAY(S);OTHER ROUTE:INHALED THROUGH THE NOSE?
  5. SYNTHROID [Concomitant]
     Active Substance: LEVOTHYROXINE SODIUM
  6. PREDNISONE. [Concomitant]
     Active Substance: PREDNISONE
  7. ANDROGEL [Concomitant]
     Active Substance: TESTOSTERONE
  8. SUCRALFATE. [Concomitant]
     Active Substance: SUCRALFATE

REACTIONS (7)
  - Product measured potency issue [None]
  - Vomiting [None]
  - Recalled product administered [None]
  - Feeling abnormal [None]
  - Hyponatraemia [None]
  - Malaise [None]
  - Headache [None]

NARRATIVE: CASE EVENT DATE: 20200809
